FAERS Safety Report 9417786 (Version 3)
Quarter: 2013Q4

REPORT INFORMATION
  Report Type: Report from Study
  Country: JP (occurrence: JP)
  Receive Date: 20130724
  Receipt Date: 20131106
  Transmission Date: 20140711
  Serious: Yes (Other)
  Sender: FDA-Public Use
  Company Number: JP-GLAXOSMITHKLINE-B0909340A

PATIENT
  Age: 31 Year
  Sex: Male
  Weight: 59 kg

DRUGS (1)
  1. ARRANON [Suspect]
     Indication: PRECURSOR T-LYMPHOBLASTIC LYMPHOMA/LEUKAEMIA
     Dosage: 1500MGM2 PER DAY
     Route: 042
     Dates: start: 20100812, end: 20100814

REACTIONS (10)
  - Neuropathy peripheral [Unknown]
  - Myelopathy [Unknown]
  - Muscular weakness [Unknown]
  - Fall [Unknown]
  - Gait disturbance [Unknown]
  - Abasia [Unknown]
  - Sensory loss [Unknown]
  - Hypoaesthesia [Unknown]
  - Fungal skin infection [Unknown]
  - Cystitis [Unknown]
